FAERS Safety Report 5136845-2 (Version None)
Quarter: 2006Q4

REPORT INFORMATION
  Report Type: 
  Country: None (occurrence: None)
  Receive Date: 20061023
  Receipt Date: 20061011
  Transmission Date: 20070319
  Serious: Yes (Life-Threatening, Hospitalization, Other)
  Sender: FDA-Public Use
  Company Number: 2006SP002587

PATIENT
  Age: 47 Year
  Sex: Male
  Weight: 91 kg

DRUGS (6)
  1. PEG-INTRON [Suspect]
     Indication: HEPATITIS C
     Dosage: 50 MCG; QW; SC; SEE IMAGE
     Route: 058
     Dates: end: 20060916
  2. PEG-INTRON [Suspect]
     Indication: HEPATITIS C
     Dosage: 50 MCG; QW; SC; SEE IMAGE
     Route: 058
     Dates: start: 20051224
  3. PROPRANOLOL [Concomitant]
  4. ACETAMINOPHEN [Concomitant]
  5. AMOXICILLIN [Concomitant]
  6. DICLOFENAC [Concomitant]

REACTIONS (4)
  - ABSCESS [None]
  - ARTHRALGIA [None]
  - BONE DISORDER [None]
  - SIGMOIDITIS [None]
